FAERS Safety Report 23972936 (Version 1)
Quarter: 2024Q2

REPORT INFORMATION
  Report Type: Spontaneous
  Country: US (occurrence: None)
  Receive Date: 20240613
  Receipt Date: 20240613
  Transmission Date: 20240716
  Serious: No
  Sender: FDA-Public Use
  Company Number: 2024A124577

PATIENT
  Age: 60 Year
  Sex: Male
  Weight: 87.5 kg

DRUGS (13)
  1. CRESTOR [Suspect]
     Active Substance: ROSUVASTATIN CALCIUM
     Route: 048
  2. METOPROLOL [Suspect]
     Active Substance: METOPROLOL
     Route: 048
  3. LENVIMA [Suspect]
     Active Substance: LENVATINIB
     Indication: Thyroid cancer
     Dosage: 20.0MG UNKNOWN
     Route: 048
  4. CLOPIDOGREL [Concomitant]
     Active Substance: CLOPIDOGREL BISULFATE
  5. ALLOPURINOL [Concomitant]
     Active Substance: ALLOPURINOL
  6. AMLODIPINE [Concomitant]
     Active Substance: AMLODIPINE BESYLATE
  7. LATANOPROST [Concomitant]
     Active Substance: LATANOPROST
  8. MELOXICAM [Concomitant]
     Active Substance: MELOXICAM
  9. PEPCID [Concomitant]
     Active Substance: FAMOTIDINE
  10. SUCRALFATE [Concomitant]
     Active Substance: SUCRALFATE
  11. SYNTHROID [Concomitant]
     Active Substance: LEVOTHYROXINE SODIUM
  12. VALSARTAN [Concomitant]
     Active Substance: VALSARTAN
  13. SYSTANE ICAPS AREDS 2 [Concomitant]

REACTIONS (6)
  - Vomiting [Unknown]
  - Weight decreased [Unknown]
  - Hernia [Unknown]
  - Hypotension [Unknown]
  - Dizziness [Unknown]
  - Product dose omission issue [Unknown]
